FAERS Safety Report 21098877 (Version 1)
Quarter: 2022Q3

REPORT INFORMATION
  Report Type: Spontaneous
  Country: US (occurrence: None)
  Receive Date: 20220718
  Receipt Date: 20220718
  Transmission Date: 20221027
  Serious: Yes (Disabling, Other)
  Sender: FDA-Public Use
  Company Number: None

PATIENT
  Age: 63 Year
  Sex: Male
  Weight: 103.95 kg

DRUGS (5)
  1. ROSUVASTATIN [Suspect]
     Active Substance: ROSUVASTATIN
     Indication: Blood triglycerides increased
     Dosage: FREQUENCY : DAILY;?
     Route: 048
     Dates: start: 20220608, end: 20220612
  2. LOSARTAN [Concomitant]
     Active Substance: LOSARTAN
  3. OMEGA 3 [Concomitant]
     Active Substance: CAPSAICIN
  4. ONE-A-DAY NOS [Concomitant]
     Active Substance: MINERALS\VITAMINS
  5. VITAMIN E [Concomitant]
     Active Substance: .ALPHA.-TOCOPHEROL

REACTIONS (4)
  - Non-cardiac chest pain [None]
  - Myalgia [None]
  - Asthenia [None]
  - Neuropathy peripheral [None]

NARRATIVE: CASE EVENT DATE: 20220612
